FAERS Safety Report 9219988 (Version 1)
Quarter: 2013Q2

REPORT INFORMATION
  Report Type: Spontaneous
  Country: ES (occurrence: None)
  Receive Date: 20130405
  Receipt Date: 20130405
  Transmission Date: 20140414
  Serious: Yes (Hospitalization)
  Sender: FDA-Public Use
  Company Number: B0880603A

PATIENT
  Age: 46 Year
  Sex: Female

DRUGS (1)
  1. PAZOPANIB [Suspect]
     Indication: RENAL CELL CARCINOMA

REACTIONS (7)
  - Vision blurred [None]
  - Headache [None]
  - Blood pressure increased [None]
  - Retinal exudates [None]
  - Retinal haemorrhage [None]
  - Optic disc disorder [None]
  - Retinopathy hypertensive [None]
